FAERS Safety Report 10431386 (Version 1)
Quarter: 2014Q3

REPORT INFORMATION
  Report Type: Spontaneous
  Country: US (occurrence: None)
  Receive Date: 20140903
  Receipt Date: 20140903
  Transmission Date: 20150326
  Serious: Yes (Other)
  Sender: FDA-Public Use
  Company Number: US-001113

PATIENT
  Sex: Male

DRUGS (6)
  1. CIMZIA [Concomitant]
     Active Substance: CERTOLIZUMAB PEGOL
  2. OMEPRAZOLE. [Concomitant]
     Active Substance: OMEPRAZOLE
  3. LOMOTIL [Concomitant]
     Active Substance: ATROPINE SULFATE\DIPHENOXYLATE HYDROCHLORIDE
  4. ANT HYPERTENSIVES [Concomitant]
  5. SOLUTION FOR PARENTERAL NUTRITION [Concomitant]
  6. GATTEX [Suspect]
     Active Substance: TEDUGLUTIDE\WATER
     Route: 058
     Dates: start: 20140425

REACTIONS (1)
  - Hypersensitivity vasculitis [None]
